FAERS Safety Report 8930106 (Version 2)
Quarter: 2013Q1

REPORT INFORMATION
  Report Type: Spontaneous
  Country: CA (occurrence: CA)
  Receive Date: 20121128
  Receipt Date: 20130122
  Transmission Date: 20140127
  Serious: Yes (Hospitalization)
  Sender: FDA-Public Use
  Company Number: CA-ROCHE-1160664

PATIENT
  Age: 60 Year
  Sex: Female

DRUGS (5)
  1. RITUXAN [Suspect]
     Indication: HODGKIN^S DISEASE
     Dosage: FOR 6 CYCLES
     Route: 042
     Dates: start: 20110310, end: 20110629
  2. RITUXAN [Suspect]
     Dosage: LAST INFUSION: 29/AUG/2012, MAINTANENCE THERAPY FOR 5 CYCLES
     Route: 042
     Dates: start: 201109
  3. CYCLOPHOSPHAMIDE [Concomitant]
     Indication: LYMPHOMA
     Dosage: FOR 6 CYCLES
     Route: 042
     Dates: start: 20110310, end: 20110629
  4. VINCRISTINE [Concomitant]
     Indication: LYMPHOMA
     Dosage: FOR 6 CYCLES
     Route: 042
     Dates: start: 20110310, end: 20110629
  5. PREDNISOLONE [Concomitant]
     Indication: LYMPHOMA
     Dosage: FOR 6 CYCLES
     Route: 048
     Dates: start: 20110310, end: 20110629

REACTIONS (1)
  - Progressive multifocal leukoencephalopathy [Not Recovered/Not Resolved]
